FAERS Safety Report 15480794 (Version 2)
Quarter: 2019Q1

REPORT INFORMATION
  Report Type: Report from Study
  Country: CO (occurrence: CO)
  Receive Date: 20181010
  Receipt Date: 20190307
  Transmission Date: 20190417
  Serious: Yes (Hospitalization)
  Sender: FDA-Public Use
  Company Number: PHHY2018CO104347

PATIENT
  Sex: Female
  Weight: 28 kg

DRUGS (6)
  1. TRAMADOL. [Concomitant]
     Active Substance: TRAMADOL
     Indication: PAIN
     Route: 065
  2. JADENU [Suspect]
     Active Substance: DEFERASIROX
     Indication: APLASTIC ANAEMIA
     Dosage: 360 MG, QD
     Route: 048
     Dates: start: 20180816, end: 20180905
  3. FOLIC ACID. [Concomitant]
     Active Substance: FOLIC ACID
     Indication: HAEMOGLOBIN ABNORMAL
     Dosage: 1 MG, QD
     Route: 048
  4. JADENU [Suspect]
     Active Substance: DEFERASIROX
     Dosage: 360 MG, QD
     Route: 048
     Dates: start: 20180917
  5. SULZINC [Concomitant]
     Indication: ABNORMAL ORGAN GROWTH
     Dosage: 5 ML, QD
     Route: 048
  6. HYDROXYUREA. [Concomitant]
     Active Substance: HYDROXYUREA
     Indication: APLASTIC ANAEMIA
     Dosage: 500 MG, QD
     Route: 048

REACTIONS (8)
  - Anaemia [Unknown]
  - Pneumonia [Recovering/Resolving]
  - Abdominal pain [Recovering/Resolving]
  - Tachycardia [Recovering/Resolving]
  - Tonsillitis [Unknown]
  - Feeling abnormal [Recovering/Resolving]
  - Cholelithiasis [Recovering/Resolving]
  - Fatigue [Unknown]
